FAERS Safety Report 14347266 (Version 1)
Quarter: 2018Q1

REPORT INFORMATION
  Report Type: Spontaneous
  Country: US (occurrence: US)
  Receive Date: 20180102
  Receipt Date: 20180102
  Transmission Date: 20180509
  Serious: Yes (Disabling)
  Sender: FDA-Public Use
  Company Number: None

PATIENT
  Age: 53 Year
  Sex: Female
  Weight: 78.75 kg

DRUGS (11)
  1. CONTRAVE [Suspect]
     Active Substance: BUPROPION HYDROCHLORIDE\NALTREXONE HYDROCHLORIDE
     Indication: WEIGHT DECREASED
     Route: 048
  2. TOPAMAX [Concomitant]
     Active Substance: TOPIRAMATE
  3. OMEPRIZAL [Concomitant]
  4. DUAVEE [Concomitant]
     Active Substance: BAZEDOXIFENE ACETATE\ESTROGENS, CONJUGATED
  5. HAIR+SKIN [Concomitant]
  6. ZOMIG [Concomitant]
     Active Substance: ZOLMITRIPTAN
  7. VITAMIN D3 [Concomitant]
     Active Substance: CHOLECALCIFEROL
  8. DAILY MULTIPLE [Concomitant]
  9. PRESERVISION [Concomitant]
     Active Substance: MINERALS\VITAMINS
  10. VITAMIN B COMPLEX [Concomitant]
     Active Substance: CYANOCOBALAMIN\DEXPANTHENOL\NIACINAMIDE\PYRIDOXINE HYDROCHLORIDE\RIBOFLAVIN 5^-PHOSPHATE SODIUM\THIAMINE HYDROCHLORIDE\VITAMIN B COMPLEX
  11. SUMATRIPTAN. [Concomitant]
     Active Substance: SUMATRIPTAN

REACTIONS (1)
  - Nervous system disorder [None]

NARRATIVE: CASE EVENT DATE: 20170315
